APPROVED DRUG PRODUCT: LEVOFLOXACIN
Active Ingredient: LEVOFLOXACIN
Strength: 500MG
Dosage Form/Route: TABLET;ORAL
Application: A077438 | Product #002
Applicant: SANDOZ INC
Approved: Jun 20, 2011 | RLD: No | RS: No | Type: DISCN